FAERS Safety Report 5009478-6 (Version None)
Quarter: 2006Q2

REPORT INFORMATION
  Report Type: 
  Country: None (occurrence: None)
  Receive Date: 20060522
  Receipt Date: 20060508
  Transmission Date: 20061013
  Serious: Yes (Hospitalization)
  Sender: FDA-Public Use
  Company Number: E2020-00023-SPO-US

PATIENT
  Age: 85 Year
  Sex: Female
  Weight: 54 kg

DRUGS (4)
  1. ARICEPT [Suspect]
     Indication: DEMENTIA ALZHEIMER'S TYPE
     Dosage: 1 DOSAGE FORMS, 5 MG ALTERNATING ORAL
     Route: 048
     Dates: start: 20040518, end: 20040629
  2. NAMENDA [Concomitant]
  3. TOPROL-XL [Concomitant]
  4. SYNTHROID [Concomitant]

REACTIONS (6)
  - ARRHYTHMIA [None]
  - CARDIOMEGALY [None]
  - CONFUSIONAL STATE [None]
  - DEMENTIA [None]
  - MENTAL STATUS CHANGES [None]
  - VENTRICULAR EXTRASYSTOLES [None]
